FAERS Safety Report 18433302 (Version 1)
Quarter: 2020Q4

REPORT INFORMATION
  Report Type: Spontaneous
  Country: IT (occurrence: IT)
  Receive Date: 20201027
  Receipt Date: 20201027
  Transmission Date: 20210114
  Serious: Yes (Other)
  Sender: FDA-Public Use
  Company Number: IT-BRISTOL-MYERS SQUIBB COMPANY-BMS-2020-087130

PATIENT
  Age: 67 Year
  Sex: Male
  Weight: 64 kg

DRUGS (1)
  1. DASATINIB. [Suspect]
     Active Substance: DASATINIB
     Indication: CHRONIC LEUKAEMIA
     Dosage: 100 MILLIGRAM, 1 DAY
     Route: 048
     Dates: start: 20190802, end: 20200728

REACTIONS (3)
  - Pleural effusion [Recovering/Resolving]
  - Weight decreased [Recovering/Resolving]
  - Pulmonary toxicity [Unknown]

NARRATIVE: CASE EVENT DATE: 20200628
